FAERS Safety Report 4895065-7 (Version None)
Quarter: 2006Q1

REPORT INFORMATION
  Report Type: 
  Country: None (occurrence: None)
  Receive Date: 20060130
  Receipt Date: 20060118
  Transmission Date: 20060701
  Serious: Yes (Hospitalization)
  Sender: FDA-Public Use
  Company Number: PHHO2006FR01163

PATIENT
  Age: 61 Year
  Sex: Female

DRUGS (6)
  1. CYCLOSPORINE [Suspect]
     Indication: RENAL TRANSPLANT
     Dosage: 175 MG, BID
     Route: 048
     Dates: start: 20050709
  2. DACLIZUMAB [Suspect]
     Indication: RENAL TRANSPLANT
     Dosage: UNK, UNK
     Route: 042
     Dates: start: 20050709
  3. MYCOPHENOLATE MOFETIL [Suspect]
     Indication: RENAL TRANSPLANT
     Dosage: 1000 MG, BID
     Route: 048
     Dates: start: 20050709
  4. CORTICOSTEROIDS [Suspect]
     Dosage: 10 MG/DAY
     Route: 048
     Dates: start: 20050709
  5. MOPRAL [Concomitant]
     Dates: start: 20050709
  6. LASILIX [Concomitant]
     Dates: start: 20050709

REACTIONS (1)
  - CHOLECYSTITIS [None]
